FAERS Safety Report 17399951 (Version 1)
Quarter: 2020Q1

REPORT INFORMATION
  Report Type: Spontaneous
  Country: NO (occurrence: NO)
  Receive Date: 20200211
  Receipt Date: 20200211
  Transmission Date: 20200409
  Serious: Yes (Other)
  Sender: FDA-Public Use
  Company Number: NO-TEVA-2020-NO-1183973

PATIENT
  Age: 52 Year
  Sex: Male
  Weight: 102 kg

DRUGS (4)
  1. CIPROFLOXACIN. [Suspect]
     Active Substance: CIPROFLOXACIN
     Indication: PNEUMONIA
     Dosage: 500 MG
     Dates: start: 20191219, end: 20191223
  2. BENZATHINE PHENOXYMETHYL PENICILLIN [Suspect]
     Active Substance: PENICILLIN V BENZATHINE
     Indication: PNEUMONIA
     Dosage: 100 MG
     Dates: start: 20160520, end: 20160527
  3. EMCONCOR CHF [Concomitant]
     Active Substance: BISOPROLOL FUMARATE
     Dates: start: 20061115
  4. DOXYCYCLINE. [Suspect]
     Active Substance: DOXYCYCLINE
     Indication: PNEUMONIA
     Dosage: 100 MG
     Dates: start: 20191218, end: 20191219

REACTIONS (5)
  - Peripheral swelling [Not Recovered/Not Resolved]
  - Penile haemorrhage [Unknown]
  - Erythema [Unknown]
  - Penile oedema [Not Recovered/Not Resolved]
  - Penile pain [Unknown]

NARRATIVE: CASE EVENT DATE: 20191218
